FAERS Safety Report 4590211-7 (Version None)
Quarter: 2005Q1

REPORT INFORMATION
  Report Type: 
  Country: None (occurrence: None)
  Receive Date: 20050217
  Receipt Date: 20050207
  Transmission Date: 20050727
  Serious: Yes (Hospitalization)
  Sender: FDA-Public Use
  Company Number: 2005026574

PATIENT
  Age: 32 Year
  Sex: Female
  Weight: 68.0396 kg

DRUGS (3)
  1. DETROL LA [Suspect]
     Indication: HYPERTONIC BLADDER
     Dosage: 4 MG (4 MG , QD), ORAL
     Route: 048
     Dates: start: 20030101, end: 20040801
  2. SALBUTAMOL (SALBUTAMOL) [Concomitant]
  3. FLUTICASONE PROPIONATE [Concomitant]

REACTIONS (5)
  - BLADDER SPASM [None]
  - DRUG INEFFECTIVE [None]
  - DRY EYE [None]
  - DRY MOUTH [None]
  - NASAL DRYNESS [None]
